FAERS Safety Report 4285051-2 (Version None)
Quarter: 2004Q1

REPORT INFORMATION
  Report Type: 
  Country: None (occurrence: None)
  Receive Date: 20040203
  Receipt Date: 20040203
  Transmission Date: 20041129
  Serious: Yes (Life-Threatening, Hospitalization)
  Sender: FDA-Public Use
  Company Number: None

PATIENT
  Age: 39 Year
  Sex: Female

DRUGS (3)
  1. VALIUM [Suspect]
     Indication: SUICIDE ATTEMPT
     Dosage: UNKNOWN X 1
     Dates: start: 20030908
  2. COCAINE [Concomitant]
  3. ALCOHOL [Concomitant]

REACTIONS (8)
  - BLOOD ALCOHOL INCREASED [None]
  - HYPOTENSION [None]
  - MULTIPLE FRACTURES [None]
  - PAIN [None]
  - PLEURAL EFFUSION [None]
  - PNEUMOTHORAX [None]
  - SUICIDE ATTEMPT [None]
  - TOXICOLOGIC TEST ABNORMAL [None]
